FAERS Safety Report 11066586 (Version 1)
Quarter: 2015Q2

REPORT INFORMATION
  Report Type: Spontaneous
  Country: US (occurrence: None)
  Receive Date: 20150416
  Receipt Date: 20150416
  Transmission Date: 20150821
  Serious: Yes (Other)
  Sender: FDA-Public Use
  Company Number: 2014P1000457

PATIENT
  Age: 73 Year
  Sex: Female
  Weight: 57.15 kg

DRUGS (3)
  1. PARNATE [Suspect]
     Active Substance: TRANYLCYPROMINE SULFATE
     Indication: DEPRESSION
     Route: 048
     Dates: start: 1991, end: 1999
  2. SIMVASTATIN. [Concomitant]
     Active Substance: SIMVASTATIN
  3. BLOOD PRESSURE MEDICATION [Concomitant]
     Active Substance: UNSPECIFIED INGREDIENT

REACTIONS (10)
  - Bone pain [None]
  - Myalgia [None]
  - Food interaction [None]
  - Hallucination, visual [None]
  - Dissociation [None]
  - Musculoskeletal stiffness [None]
  - Tachyphrenia [None]
  - Blood pressure increased [None]
  - Disorientation [None]
  - Activities of daily living impaired [None]

NARRATIVE: CASE EVENT DATE: 1991
